FAERS Safety Report 9242443 (Version 1)
Quarter: 2013Q2

REPORT INFORMATION
  Report Type: Spontaneous
  Country: FR (occurrence: FR)
  Receive Date: 20130419
  Receipt Date: 20130419
  Transmission Date: 20140414
  Serious: Yes (Hospitalization)
  Sender: FDA-Public Use
  Company Number: FR-BRISTOL-MYERS SQUIBB COMPANY-17030230

PATIENT
  Age: 41 Year
  Sex: Male

DRUGS (3)
  1. REYATAZ [Suspect]
     Indication: ANTIRETROVIRAL THERAPY
     Dosage: 03FEB2006,10SEP2010(DISCONTINUED),25FEB2011(REINTRODUCED).
     Route: 048
     Dates: start: 20060203, end: 20120605
  2. NORVIR [Suspect]
     Indication: ANTIRETROVIRAL THERAPY
     Dosage: 03FEB2006,10SEP2010(DISCONTINUED),25FEB2011(REINTRODUCED).
     Route: 048
     Dates: start: 20060203, end: 20120605
  3. TRUVADA [Suspect]
     Indication: ANTIRETROVIRAL THERAPY
     Dosage: 03FEB2006,10SEP2010(DISCONTINUED),25FEB2011(REINTRODUCED).
     Dates: start: 20060203, end: 20120605

REACTIONS (4)
  - Renal failure [Unknown]
  - Nephrolithiasis [Recovered/Resolved]
  - Pyelocaliectasis [Recovered/Resolved]
  - Renal tubular disorder [Recovering/Resolving]
